FAERS Safety Report 8310817-9 (Version None)
Quarter: 2012Q2

REPORT INFORMATION
  Report Type: 
  Country: None (occurrence: None)
  Receive Date: 20120425
  Receipt Date: 20110125
  Transmission Date: 20120825
  Serious: Yes (Other)
  Sender: FDA-Public Use
  Company Number: PHHY2011AU116342

PATIENT
  Sex: Female

DRUGS (3)
  1. ZOLEDRONOC ACID [Suspect]
     Dates: start: 20091210
  2. ZOLEDRONOC ACID [Suspect]
     Dates: start: 20110228
  3. ZOLEDRONOC ACID [Suspect]
     Dates: start: 20120316

REACTIONS (2)
  - MALAISE [None]
  - WHEELCHAIR USER [None]
